FAERS Safety Report 4282299-8 (Version None)
Quarter: 2004Q1

REPORT INFORMATION
  Report Type: 
  Country: None (occurrence: None)
  Receive Date: 20040108
  Receipt Date: 20030818
  Transmission Date: 20041129
  Serious: Yes (Hospitalization, Other)
  Sender: FDA-Public Use
  Company Number: HQWYE191919AUG03

PATIENT
  Age: 47 Year
  Sex: Female
  Weight: 61.29 kg

DRUGS (5)
  1. PREMPRO [Suspect]
     Indication: HOT FLUSH
     Dosage: 0.625MG/2.5 MG DAILY, ORAL
     Route: 048
     Dates: start: 19990712, end: 20020813
  2. PREMPRO [Suspect]
     Indication: HOT FLUSH
     Dosage: 0.625MG/2.5 MG DAILY, ORAL
     Route: 048
     Dates: start: 20021126, end: 20030617
  3. SYNTHROID [Concomitant]
  4. EVISTA [Suspect]
     Indication: MENOPAUSE
     Dosage: 60 MG DAILY, ORAL
     Route: 048
     Dates: start: 20020813, end: 20021120
  5. EVISTA [Suspect]
     Indication: OSTEOPOROSIS
     Dosage: 60 MG DAILY, ORAL
     Route: 048
     Dates: start: 20020813, end: 20021120

REACTIONS (1)
  - BREAST CANCER [None]
